FAERS Safety Report 11300916 (Version 1)
Quarter: 2015Q3

REPORT INFORMATION
  Report Type: Spontaneous
  Country: US (occurrence: US)
  Receive Date: 20150722
  Receipt Date: 20150722
  Transmission Date: 20151125
  Serious: No
  Sender: FDA-Public Use
  Company Number: US-ELI_LILLY_AND_COMPANY-US201112002883

PATIENT
  Age: 26 Year
  Sex: Male

DRUGS (7)
  1. HUMATROPE [Suspect]
     Active Substance: SOMATROPIN
     Indication: HORMONE THERAPY
     Dosage: UNK UNK, QD
     Dates: end: 200403
  2. ABILIFY [Concomitant]
     Active Substance: ARIPIPRAZOLE
  3. HUMATROPE [Suspect]
     Active Substance: SOMATROPIN
     Dosage: UNK UNK, QD
     Dates: start: 2009
  4. L-TYROSINE [Concomitant]
  5. MAGNESIUM [Concomitant]
     Active Substance: MAGNESIUM
  6. CARNITINE [Concomitant]
     Active Substance: CARNITINE
  7. DEPAKOTE [Concomitant]
     Active Substance: DIVALPROEX SODIUM

REACTIONS (2)
  - Drug administered in wrong device [Unknown]
  - Migraine [Not Recovered/Not Resolved]
